FAERS Safety Report 25622779 (Version 1)
Quarter: 2025Q3

REPORT INFORMATION
  Report Type: Spontaneous
  Country: US (occurrence: None)
  Receive Date: 20250729
  Receipt Date: 20250729
  Transmission Date: 20251020
  Serious: Yes (Other)
  Sender: FDA-CTU
  Company Number: None

PATIENT
  Age: 67 Year
  Sex: Male

DRUGS (5)
  1. TYVASO DPI [Suspect]
     Active Substance: TREPROSTINIL
     Indication: Interstitial lung disease
     Dosage: 1 INHALATIONS) EVERY 4 HOURS RESPIRATORY (INHALATION)?
     Route: 055
     Dates: start: 20250723, end: 20250727
  2. TYVASO DPI [Suspect]
     Active Substance: TREPROSTINIL
     Indication: Dyspnoea
  3. CELLCEPT [Concomitant]
     Active Substance: MYCOPHENOLATE MOFETIL
  4. LASIX [Concomitant]
     Active Substance: FUROSEMIDE
  5. ALDACTONE [Concomitant]
     Active Substance: SPIRONOLACTONE

REACTIONS (6)
  - Dizziness [None]
  - Blood pressure decreased [None]
  - Nocturnal dyspnoea [None]
  - Fatigue [None]
  - Pain in extremity [None]
  - Peripheral swelling [None]

NARRATIVE: CASE EVENT DATE: 20250727
